FAERS Safety Report 12325979 (Version 6)
Quarter: 2019Q2

REPORT INFORMATION
  Report Type: Spontaneous
  Country: US (occurrence: US)
  Receive Date: 20160503
  Receipt Date: 20190604
  Transmission Date: 20190711
  Serious: Yes (Other)
  Sender: FDA-Public Use
  Company Number: US-PFIZER INC-2015076707

PATIENT
  Age: 63 Year
  Sex: Female
  Weight: 91 kg

DRUGS (4)
  1. AMITRIPTYLIN [Concomitant]
     Active Substance: AMITRIPTYLINE
     Dosage: 25 MG, 2 TABLETS AT BEDTIME
     Route: 048
     Dates: start: 20110124
  2. PANTOPRAZOLE SODIUM SESQUIHYDRATE [Concomitant]
     Active Substance: PANTOPRAZOLE SODIUM
     Indication: GASTROOESOPHAGEAL REFLUX DISEASE
     Dosage: 40 MG, 1X/DAY (IN THE MORNING)
     Route: 048
  3. METOPROLOL. [Concomitant]
     Active Substance: METOPROLOL
     Indication: HEART RATE IRREGULAR
     Dosage: 50 MG, 2X/DAY
     Route: 048
  4. LYRICA [Suspect]
     Active Substance: PREGABALIN
     Indication: FIBROMYALGIA
     Dosage: 100 MG, 3X/DAY
     Route: 048
     Dates: start: 20110322

REACTIONS (7)
  - Deafness neurosensory [Not Recovered/Not Resolved]
  - Dysphagia [Unknown]
  - Sinusitis [Unknown]
  - Otorrhoea [Unknown]
  - Dysphonia [Unknown]
  - Nasal congestion [Unknown]
  - Ear pain [Unknown]

NARRATIVE: CASE EVENT DATE: 20150401
